FAERS Safety Report 9693325 (Version 2)
Quarter: 2013Q4

REPORT INFORMATION
  Report Type: Report from Study
  Country: CO (occurrence: CO)
  Receive Date: 20131118
  Receipt Date: 20131119
  Transmission Date: 20140711
  Serious: Yes (Other)
  Sender: FDA-Public Use
  Company Number: CO-ROCHE-1304188

PATIENT
  Age: 78 Year
  Sex: Female
  Weight: 60.06 kg

DRUGS (3)
  1. LUCENTIS [Suspect]
     Indication: MACULAR OEDEMA
     Dosage: PATIENT RECEIVED RECENT INJECTION OF LUCENTIS ON 31 OCT 2013.
     Route: 050
     Dates: start: 20130521
  2. LUCENTIS [Suspect]
     Indication: MACULAR DEGENERATION
  3. OMEGA 3 [Concomitant]

REACTIONS (2)
  - Retinal detachment [Recovering/Resolving]
  - Eye haemorrhage [Unknown]
